FAERS Safety Report 5767937-2 (Version None)
Quarter: 2008Q2

REPORT INFORMATION
  Report Type: 
  Country: None (occurrence: None)
  Receive Date: 20080606
  Receipt Date: 20080523
  Transmission Date: 20081010
  Serious: Yes (Other)
  Sender: FDA-Public Use
  Company Number: 000#8#2008-00102

PATIENT
  Age: 49 Year
  Sex: Female

DRUGS (3)
  1. ISOSORBIDE DINITRATE [Suspect]
     Indication: ARTERIOSPASM CORONARY
     Dosage: (1 MG 2 IN 2 MONTHS(S)) INTRACORONARY
     Route: 022
     Dates: start: 20060301, end: 20060401
  2. GLYCERYL TRINITRATE (DOSE UNKNOWN), UNKNOWN (GLYCERYL TRINITRATE) [Suspect]
     Indication: ARTERIOSPASM CORONARY
     Dosage: SUBLINGUAL
     Route: 060
     Dates: start: 20060401, end: 20060401
  3. HEPARIN [Concomitant]

REACTIONS (1)
  - DRUG INEFFECTIVE [None]
